FAERS Safety Report 4437402-3 (Version None)
Quarter: 2004Q3

REPORT INFORMATION
  Report Type: 
  Country: None (occurrence: None)
  Receive Date: 20040827
  Receipt Date: 20040813
  Transmission Date: 20050211
  Serious: No
  Sender: FDA-Public Use
  Company Number: 04P-163-0266051-00

PATIENT
  Age: 55 Year
  Sex: Male

DRUGS (16)
  1. HUMIRA [Suspect]
     Indication: PSORIATIC ARTHROPATHY
     Dosage: 40 MG, 1 IN 2 WK, SUBCUTANEOUS
     Route: 058
     Dates: start: 20040526, end: 20040707
  2. METHOTREXATE SODIUM [Concomitant]
  3. HYDROXYZINE [Concomitant]
  4. ABSORBASE [Concomitant]
  5. ATENOLOL [Concomitant]
  6. SIMVASTATIN [Concomitant]
  7. METFORMIN HCL [Concomitant]
  8. PROXIDENE [Concomitant]
  9. RISPERIDONE [Concomitant]
  10. ACETYLSALICYLIC ACID [Concomitant]
  11. FOLIC ACID [Concomitant]
  12. CALCIPOTRIOL [Concomitant]
  13. ABSORBASE [Concomitant]
  14. CLOBETASOL [Concomitant]
  15. ARTIFICIAL TEARS [Concomitant]
  16. FLUMISOLIDE [Concomitant]

REACTIONS (6)
  - IATROGENIC INJURY [None]
  - OPTIC NEURITIS RETROBULBAR [None]
  - PUPILLARY DISORDER [None]
  - SCOTOMA [None]
  - VISUAL ACUITY REDUCED [None]
  - VISUAL FIELD DEFECT [None]
